FAERS Safety Report 8548846-2 (Version None)
Quarter: 2012Q3

REPORT INFORMATION
  Report Type: 
  Country: None (occurrence: None)
  Receive Date: 20120730
  Receipt Date: 20120721
  Transmission Date: 20120928
  Serious: Yes (Hospitalization)
  Sender: FDA-Public Use
  Company Number: US-US-EMD SERONO, INC.-7149444

PATIENT
  Sex: Female

DRUGS (3)
  1. REBIF [Suspect]
     Indication: PRODUCT USED FOR UNKNOWN INDICATION
     Route: 058
     Dates: start: 20111216
  2. IBUPROFEN [Concomitant]
     Indication: PREMEDICATION
  3. REBIF [Suspect]
     Route: 058

REACTIONS (5)
  - PYREXIA [None]
  - INJECTION SITE HAEMATOMA [None]
  - COLITIS ULCERATIVE [None]
  - CATHETER SITE INFECTION [None]
  - INJECTION SITE NODULE [None]
